FAERS Safety Report 5673001-3 (Version None)
Quarter: 2008Q1

REPORT INFORMATION
  Report Type: 
  Country: None (occurrence: None)
  Receive Date: 20080319
  Receipt Date: 20080312
  Transmission Date: 20080703
  Serious: Yes (Other)
  Sender: FDA-Public Use
  Company Number: B0512573A

PATIENT
  Age: 47 Year
  Sex: Female

DRUGS (1)
  1. VALACYCLOVIR [Suspect]
     Indication: HERPES VIRUS INFECTION
     Route: 048
     Dates: start: 20080301, end: 20080301

REACTIONS (2)
  - CONJUNCTIVAL HAEMORRHAGE [None]
  - EPISTAXIS [None]
